FAERS Safety Report 16185794 (Version 1)
Quarter: 2019Q2

REPORT INFORMATION
  Report Type: Spontaneous
  Country: US (occurrence: US)
  Receive Date: 20190411
  Receipt Date: 20190411
  Transmission Date: 20190711
  Serious: Yes (Other)
  Sender: FDA-Public Use
  Company Number: US-JNJFOC-20190411145

PATIENT

DRUGS (2)
  1. XARELTO [Suspect]
     Active Substance: RIVAROXABAN
     Indication: THROMBOSIS
     Route: 048
     Dates: start: 201510, end: 201708
  2. XARELTO [Suspect]
     Active Substance: RIVAROXABAN
     Indication: CARDIOVERSION
     Route: 048
     Dates: start: 201510, end: 201708

REACTIONS (3)
  - Cerebrovascular accident [Unknown]
  - Rectal haemorrhage [Unknown]
  - Vaginal haemorrhage [Unknown]

NARRATIVE: CASE EVENT DATE: 201705
